FAERS Safety Report 24277242 (Version 1)
Quarter: 2024Q3

REPORT INFORMATION
  Report Type: Spontaneous
  Country: US (occurrence: None)
  Receive Date: 20240830
  Receipt Date: 20240830
  Transmission Date: 20241016
  Serious: Yes (Death)
  Sender: Public
  Company Number: None

PATIENT
  Age: 75 Year
  Sex: Male
  Weight: 71 kg

DRUGS (1)
  1. CARVYKTI [Suspect]
     Active Substance: CILTACABTAGENE AUTOLEUCEL
     Dates: start: 20240423, end: 20240423

REACTIONS (18)
  - Mental status changes [None]
  - Cytokine release syndrome [None]
  - Pancytopenia [None]
  - Sinusitis [None]
  - Pneumonia [None]
  - Colitis [None]
  - Delirium [None]
  - Dementia [None]
  - Febrile neutropenia [None]
  - Serum ferritin increased [None]
  - Blood lactate dehydrogenase increased [None]
  - Hypertransaminasaemia [None]
  - Colitis [None]
  - Bradycardia [None]
  - Hypotension [None]
  - Cardiac arrest [None]
  - Enterocolitis [None]
  - Adenovirus infection [None]

NARRATIVE: CASE EVENT DATE: 20240726
